FAERS Safety Report 21207283 (Version 2)
Quarter: 2022Q3

REPORT INFORMATION
  Report Type: Spontaneous
  Country: IE (occurrence: IE)
  Receive Date: 20220812
  Receipt Date: 20220916
  Transmission Date: 20221027
  Serious: Yes (Death, Life-Threatening)
  Sender: FDA-Public Use
  Company Number: None

PATIENT
  Age: 64 Year
  Sex: Male
  Weight: 78.8 kg

DRUGS (5)
  1. PACLITAXEL [Suspect]
     Active Substance: PACLITAXEL
     Indication: Non-small cell lung cancer stage III
     Dosage: IN NACL 0.9%, FIRST DOSE, DURATION OF USE BEFORE REACTION 13 MINUTES (APPROX. 19.5MG), (GENERIC), 90
     Dates: start: 20220711, end: 20220711
  2. FAMOTIDINE [Concomitant]
     Active Substance: FAMOTIDINE
     Indication: Premedication
     Dosage: STANDARD PRE-MEDICATIONS AS PER NCCP REGIMEN 00309A, (G), 20 MG
     Dates: start: 20220711, end: 20220711
  3. DEXAMETHASONE [Concomitant]
     Active Substance: DEXAMETHASONE
     Indication: Premedication
     Dosage: STANDARD PRE-MEDICATIONS AS PER NCCP REGIMEN 00309A, 8 MG
     Dates: start: 20220711, end: 20220711
  4. CHLORPHENIRAMINE MALEATE [Concomitant]
     Active Substance: CHLORPHENIRAMINE MALEATE
     Indication: Premedication
     Dosage: STANDARD PRE-MEDICATIONS AS PER NCCP REGIMEN 00309A, 10 MG
     Dates: start: 20220711, end: 20220711
  5. GRANISETRON [Concomitant]
     Active Substance: GRANISETRON
     Indication: Premedication
     Dosage: STANDARD PRE-MEDICATIONS AS PER NCCP REGIMEN 00309A, (G), 2 MG
     Dates: start: 20220711, end: 20220711

REACTIONS (7)
  - Musculoskeletal stiffness [Fatal]
  - Dyspnoea [Fatal]
  - Pulmonary embolism [Fatal]
  - Grunting [Fatal]
  - Cardiac arrest [Fatal]
  - Flushing [Fatal]
  - Mechanical ventilation [Fatal]

NARRATIVE: CASE EVENT DATE: 20220711
